FAERS Safety Report 15720342 (Version 1)
Quarter: 2018Q4

REPORT INFORMATION
  Report Type: Spontaneous
  Country: US (occurrence: US)
  Receive Date: 20181213
  Receipt Date: 20181213
  Transmission Date: 20190205
  Serious: Yes (Death, Life-Threatening, Hospitalization, Other)
  Sender: FDA-Public Use
  Company Number: US-009507513-1812USA005542

PATIENT
  Age: 92 Year
  Sex: Female
  Weight: 60 kg

DRUGS (4)
  1. ZEMURON [Suspect]
     Active Substance: ROCURONIUM BROMIDE
     Dosage: 15 MILLIGRAM
     Dates: start: 20181207
  2. ZEMURON [Suspect]
     Active Substance: ROCURONIUM BROMIDE
     Dosage: 10 MILLIGRAM
     Dates: start: 20181207
  3. SEVOFLURANE. [Suspect]
     Active Substance: SEVOFLURANE
  4. BRIDION [Suspect]
     Active Substance: SUGAMMADEX
     Indication: ELBOW OPERATION
     Dosage: 2 MILLIGRAM/KILOGRAM
     Route: 042
     Dates: start: 20181207

REACTIONS (2)
  - Blood pressure decreased [Unknown]
  - Death [Fatal]

NARRATIVE: CASE EVENT DATE: 20181207
